FAERS Safety Report 12832503 (Version 1)
Quarter: 2016Q4

REPORT INFORMATION
  Report Type: Spontaneous
  Country: US (occurrence: US)
  Receive Date: 20161010
  Receipt Date: 20161010
  Transmission Date: 20170207
  Serious: No
  Sender: FDA-Public Use
  Company Number: US-JAZZ-2016-US-012999

PATIENT
  Sex: Female

DRUGS (22)
  1. XYREM [Suspect]
     Active Substance: SODIUM OXYBATE
     Indication: NARCOLEPSY
     Dosage: 2.25 G, BID
     Route: 048
     Dates: start: 201603, end: 201603
  2. RANITIDINE. [Concomitant]
     Active Substance: RANITIDINE
  3. ADVIL [Concomitant]
     Active Substance: IBUPROFEN
  4. LORATADINE. [Concomitant]
     Active Substance: LORATADINE
  5. XYREM [Suspect]
     Active Substance: SODIUM OXYBATE
     Dosage: 3 G, BID
     Route: 048
     Dates: start: 201606
  6. MEDROXYPROGESTERONE [Concomitant]
     Active Substance: MEDROXYPROGESTERONE
  7. NASONEX [Concomitant]
     Active Substance: MOMETASONE FUROATE
  8. MUCINEX ER [Concomitant]
  9. TYLENOL ARTHRITIS ER [Concomitant]
  10. XYREM [Suspect]
     Active Substance: SODIUM OXYBATE
     Dosage: DOSE ADJUSTMENTS
     Route: 048
     Dates: start: 201603, end: 201606
  11. DEXTROAMPHET SACCHARAT, AMPHET ASPARTATE, DEXTROAMPHET SULFATE AND AMPHET SULFAT [Concomitant]
     Active Substance: AMPHETAMINE ASPARTATE\AMPHETAMINE SULFATE\DEXTROAMPHETAMINE SACCHARATE\DEXTROAMPHETAMINE SULFATE
  12. METHYLPHENIDATE. [Concomitant]
     Active Substance: METHYLPHENIDATE
  13. MELOXICAM. [Concomitant]
     Active Substance: MELOXICAM
  14. ALAWAY [Concomitant]
     Active Substance: KETOTIFEN FUMARATE
  15. ADDERALL XR [Concomitant]
     Active Substance: AMPHETAMINE ASPARTATE\AMPHETAMINE SULFATE\DEXTROAMPHETAMINE SACCHARATE\DEXTROAMPHETAMINE SULFATE
  16. TIZANIDINE HCL [Concomitant]
     Active Substance: TIZANIDINE HYDROCHLORIDE
  17. CARDIZEM CD [Concomitant]
     Active Substance: DILTIAZEM HYDROCHLORIDE
  18. NUVIGIL [Concomitant]
     Active Substance: ARMODAFINIL
  19. TRANSDERM SCOP [Concomitant]
     Active Substance: SCOPOLAMINE
  20. VITAMIN C SR [Concomitant]
  21. NAPROXEN. [Concomitant]
     Active Substance: NAPROXEN
  22. CITALOPRAM [Concomitant]
     Active Substance: CITALOPRAM HYDROBROMIDE

REACTIONS (4)
  - Heart rate increased [Unknown]
  - Cyst [Unknown]
  - Blood pressure fluctuation [Unknown]
  - Ligament sprain [Unknown]
